FAERS Safety Report 17473324 (Version 1)
Quarter: 2020Q1

REPORT INFORMATION
  Report Type: Spontaneous
  Country: US (occurrence: US)
  Receive Date: 20200218
  Receipt Date: 20200218
  Transmission Date: 20200409
  Serious: Yes (Death, Hospitalization)
  Sender: FDA-Public Use
  Company Number: None

PATIENT
  Age: 20 Year
  Sex: Male
  Weight: 150.3 kg

DRUGS (6)
  1. DAUNORUBICIN [Suspect]
     Active Substance: DAUNORUBICIN
     Dates: end: 20200205
  2. VINCRISTINE SULFATE. [Suspect]
     Active Substance: VINCRISTINE SULFATE
     Dates: end: 20200205
  3. CYTARABINE. [Suspect]
     Active Substance: CYTARABINE
     Dates: end: 20200114
  4. METHOTREXATE. [Suspect]
     Active Substance: METHOTREXATE
     Dates: end: 20200121
  5. ONCASPAR [Suspect]
     Active Substance: PEGASPARGASE
     Dates: end: 20200117
  6. PREDNISONE. [Suspect]
     Active Substance: PREDNISONE
     Dates: end: 20200205

REACTIONS (5)
  - Chest pain [None]
  - Septic shock [None]
  - Oliguria [None]
  - Haemodynamic instability [None]
  - Dyspnoea [None]

NARRATIVE: CASE EVENT DATE: 20200210
